FAERS Safety Report 7123862 (Version 7)
Quarter: 2012Q4

REPORT INFORMATION
  Report Type: 
  Country: US (occurrence: US)
  Receive Date: 20090921
  Receipt Date: 20120907
  Transmission Date: 20130627
  Serious: Yes (Hospitalization)
  Sender: FDA-Public Use
  Company Number: US-BAYER-200933102NA

PATIENT
  Age: 26 Year
  Sex: Female
  Weight: 64.55 kg

DRUGS (12)
  1. YASMIN [Suspect]
     Indication: CONTRACEPTION
     Dosage: PHARMACY RECORDS: 16 SEP 05, 17 OCT 05, 31 OCT 05, 30 NOV 05, 06 FEB 06, 01 MAR 06, 03 APR 06
     Route: 048
     Dates: start: 200410, end: 20070915
  2. YASMIN [Suspect]
     Indication: ACNE
  3. NITROFURANTOIN [Concomitant]
     Dates: start: 200604, end: 200702
  4. SULFAMETHOXAZOLE W/TRIMETHOPRIM [Concomitant]
     Dates: start: 20051021
  5. MUPIROCIN [Concomitant]
     Dates: start: 20051021
  6. ADVIL [Concomitant]
  7. ASCORBIC ACID [Concomitant]
  8. EFFEXOR [Concomitant]
     Dates: start: 200507, end: 20060215
  9. POLYETHYLENE GLYCOL [Concomitant]
     Dates: start: 200604, end: 200610
  10. LEVONORGESTREL W/ETHINYLESTRADIOL [Concomitant]
     Dates: start: 20070916, end: 20070919
  11. IBUPROFEN [Concomitant]
  12. ETHINYL ESTRADIOL W/NORGESTREL [Concomitant]
     Dosage: UNK UNK, QD
     Dates: start: 20070916, end: 20070919

REACTIONS (10)
  - Pulmonary embolism [Unknown]
  - Dyspnoea exertional [Unknown]
  - Chest pain [Unknown]
  - Musculoskeletal pain [Unknown]
  - Cough [Unknown]
  - Anxiety [None]
  - Depression [None]
  - Medical device complication [None]
  - Contusion [None]
  - Rash [None]
